FAERS Safety Report 23434127 (Version 1)
Quarter: 2024Q1

REPORT INFORMATION
  Report Type: Spontaneous
  Country: AM (occurrence: AM)
  Receive Date: 20240123
  Receipt Date: 20240123
  Transmission Date: 20240410
  Serious: Yes (Hospitalization, Other)
  Sender: FDA-Public Use
  Company Number: AM-EPICPHARMA-AM-2024EPCLIT00106

PATIENT
  Age: 60 Year
  Sex: Female

DRUGS (2)
  1. CEFTRIAXONE SODIUM [Suspect]
     Active Substance: CEFTRIAXONE SODIUM
     Indication: Product used for unknown indication
     Route: 042
  2. DEXAMETHASONE [Concomitant]
     Active Substance: DEXAMETHASONE
     Indication: Product used for unknown indication
     Dosage: MAXIMUM 36MG/ DAY FOR 3 DAYS
     Route: 065

REACTIONS (2)
  - Pneumonia streptococcal [Unknown]
  - Candida infection [Unknown]
